FAERS Safety Report 20771755 (Version 1)
Quarter: 2022Q2

REPORT INFORMATION
  Report Type: Report from Study
  Country: GR (occurrence: GR)
  Receive Date: 20220430
  Receipt Date: 20220430
  Transmission Date: 20220720
  Serious: Yes (Hospitalization)
  Sender: FDA-Public Use
  Company Number: GR-ABBVIE-22K-066-4375503-00

PATIENT
  Sex: Male
  Weight: 59 kg

DRUGS (2)
  1. CARBIDOPA\LEVODOPA [Suspect]
     Active Substance: CARBIDOPA\LEVODOPA
     Indication: Parkinson^s disease
     Dosage: MORNING DOSE: 9.0ML; CONTINUOUS RATE: 3.8ML/H; EXTRA DOSE: 1.0ML
     Route: 050
     Dates: start: 20210111
  2. CARBIDOPA\LEVODOPA [Suspect]
     Active Substance: CARBIDOPA\LEVODOPA

REACTIONS (3)
  - Oxygen saturation decreased [Recovered/Resolved]
  - Sputum retention [Recovered/Resolved]
  - Cough [Recovered/Resolved]
